FAERS Safety Report 18195537 (Version 1)
Quarter: 2020Q3

REPORT INFORMATION
  Report Type: Spontaneous
  Country: CA (occurrence: CA)
  Receive Date: 20200825
  Receipt Date: 20200825
  Transmission Date: 20201103
  Serious: Yes (Other)
  Sender: FDA-Public Use
  Company Number: CA-ASTRAZENECA-2020SF06672

PATIENT
  Age: 94 Year
  Sex: Female

DRUGS (17)
  1. GABAPENTIN. [Suspect]
     Active Substance: GABAPENTIN
     Indication: BACK PAIN
     Route: 065
  2. HYDROMORPHONE [Suspect]
     Active Substance: HYDROMORPHONE
     Indication: BACK PAIN
     Route: 048
  3. QUETIAPINE. [Suspect]
     Active Substance: QUETIAPINE
     Indication: PAIN
     Dosage: UNKNOWN
     Route: 048
  4. GABAPENTIN. [Suspect]
     Active Substance: GABAPENTIN
     Indication: PAIN
     Route: 065
  5. QUETIAPINE. [Suspect]
     Active Substance: QUETIAPINE
     Indication: SCREAMING
     Dosage: 37.5MG UNKNOWN
     Route: 048
  6. QUETIAPINE. [Suspect]
     Active Substance: QUETIAPINE
     Indication: PAIN
     Dosage: 37.5MG UNKNOWN
     Route: 048
  7. QUETIAPINE. [Suspect]
     Active Substance: QUETIAPINE
     Indication: PAIN
     Dosage: UNKNOWN
     Route: 048
  8. HYDROMORPHONE [Suspect]
     Active Substance: HYDROMORPHONE
     Indication: BACK PAIN
     Route: 048
  9. QUETIAPINE. [Concomitant]
     Active Substance: QUETIAPINE
  10. QUETIAPINE. [Suspect]
     Active Substance: QUETIAPINE
     Indication: SCREAMING
     Dosage: UNKNOWN
     Route: 048
  11. QUETIAPINE. [Suspect]
     Active Substance: QUETIAPINE
     Indication: SCREAMING
     Dosage: 12.5MG UNKNOWN
     Route: 048
  12. QUETIAPINE. [Suspect]
     Active Substance: QUETIAPINE
     Indication: PAIN
     Dosage: 12.5MG UNKNOWN
     Route: 048
  13. QUETIAPINE. [Suspect]
     Active Substance: QUETIAPINE
     Indication: SCREAMING
     Dosage: UNKNOWN
     Route: 048
  14. HYDROMORPH CONTIN [Suspect]
     Active Substance: HYDROMORPHONE
     Indication: PAIN
     Dosage: 6.0MG UNKNOWN
     Route: 048
  15. DULOXETINE. [Suspect]
     Active Substance: DULOXETINE
     Indication: BACK PAIN
     Route: 048
  16. HYDROMORPHONE [Suspect]
     Active Substance: HYDROMORPHONE
     Indication: BACK PAIN
     Dosage: 1.0MG UNKNOWN
     Route: 048
  17. PREGABALIN. [Suspect]
     Active Substance: PREGABALIN
     Indication: BACK PAIN
     Route: 065

REACTIONS (5)
  - Pain [Recovered/Resolved]
  - Sedation [Recovered/Resolved]
  - Drug ineffective for unapproved indication [Recovered/Resolved]
  - Confusional state [Recovered/Resolved]
  - Delirium [Recovered/Resolved]
